FAERS Safety Report 25126428 (Version 1)
Quarter: 2025Q1

REPORT INFORMATION
  Report Type: Report from Study
  Country: US (occurrence: US)
  Receive Date: 20250327
  Receipt Date: 20250327
  Transmission Date: 20250408
  Serious: Yes (Death)
  Sender: ROCHE
  Company Number: US-ROCHE-10000219341

PATIENT
  Age: 9 Year
  Sex: Female
  Weight: 15.5 kg

DRUGS (7)
  1. EVRYSDI [Suspect]
     Active Substance: RISDIPLAM
     Indication: Spinal muscular atrophy
     Dosage: LAST DOSE: 13-OCT-2020
     Route: 048
     Dates: start: 20201117, end: 202502
  2. EVRYSDI [Suspect]
     Active Substance: RISDIPLAM
     Dosage: 0.75 MG/ML
     Route: 050
  3. EPINEPHRINE [Concomitant]
     Active Substance: EPINEPHRINE
  4. VANCOMYCIN [Concomitant]
     Active Substance: VANCOMYCIN
  5. LIDOCAINE [Concomitant]
     Active Substance: LIDOCAINE
  6. FENTANYL [Concomitant]
     Active Substance: FENTANYL
  7. FAMOTIDINE [Concomitant]
     Active Substance: FAMOTIDINE

REACTIONS (1)
  - Spinal muscular atrophy [Fatal]
